FAERS Safety Report 9251403 (Version 5)
Quarter: 2014Q2

REPORT INFORMATION
  Report Type: Spontaneous
  Country: US (occurrence: US)
  Receive Date: 20130424
  Receipt Date: 20140530
  Transmission Date: 20141212
  Serious: No
  Sender: FDA-Public Use
  Company Number: US-ASTRAZENECA-2013SE27474

PATIENT
  Age: 68 Year
  Sex: Female

DRUGS (16)
  1. NEXIUM [Suspect]
     Indication: HYPERCHLORHYDRIA
     Route: 048
     Dates: start: 20060202
  2. NEXIUM [Suspect]
     Indication: HYPERCHLORHYDRIA
     Route: 048
     Dates: start: 2010
  3. NEXIUM [Suspect]
     Indication: HYPERCHLORHYDRIA
     Route: 048
     Dates: start: 20110317
  4. NEXIUM [Suspect]
     Indication: HYPERCHLORHYDRIA
     Route: 048
     Dates: start: 20101117
  5. TAGAMET [Concomitant]
     Dates: start: 2010
  6. PEPCID OTC [Concomitant]
     Dates: start: 2010
  7. TUMS OTC [Concomitant]
  8. VIT B 12 [Concomitant]
  9. QUINAPRIL [Concomitant]
  10. KEFLEX [Concomitant]
     Dates: start: 20110131
  11. LUNESTA [Concomitant]
     Dates: start: 20110610
  12. ALPRAZOLAM [Concomitant]
     Dates: start: 20090313
  13. SERTRALINE [Concomitant]
     Dates: start: 20090810
  14. PREDNISONE [Concomitant]
     Dates: start: 20110805
  15. AMBIEN [Concomitant]
     Dates: start: 20090114
  16. PREMARIN [Concomitant]
     Dates: start: 20060821

REACTIONS (8)
  - Osteoporosis [Unknown]
  - Bone disorder [Unknown]
  - Multiple fractures [Unknown]
  - Diabetes mellitus [Unknown]
  - Arthritis [Unknown]
  - Fall [Unknown]
  - Ankle fracture [Unknown]
  - Depression [Unknown]
